FAERS Safety Report 7565953-1 (Version None)
Quarter: 2011Q2

REPORT INFORMATION
  Report Type: 
  Country: None (occurrence: None)
  Receive Date: 20110616
  Receipt Date: 20110604
  Transmission Date: 20111010
  Serious: Yes (Hospitalization)
  Sender: FDA-Public Use
  Company Number: 2011S1000832

PATIENT
  Age: 7 Decade
  Sex: Male

DRUGS (1)
  1. LIVALO [Suspect]
     Indication: BLOOD CHOLESTEROL INCREASED
     Dosage: 1X;PO
     Route: 048
     Dates: start: 20100901, end: 20101001

REACTIONS (2)
  - DECREASED APPETITE [None]
  - RHABDOMYOLYSIS [None]
